FAERS Safety Report 16361709 (Version 1)
Quarter: 2019Q2

REPORT INFORMATION
  Report Type: Spontaneous
  Country: DE (occurrence: DE)
  Receive Date: 20190528
  Receipt Date: 20190528
  Transmission Date: 20190711
  Serious: Yes (Other)
  Sender: FDA-Public Use
  Company Number: DE-BAUSCH-BL-2019-015358

PATIENT
  Age: 77 Year
  Sex: Male

DRUGS (8)
  1. SALBU NOVOLIZER [Suspect]
     Active Substance: ALBUTEROL SULFATE
     Indication: RESPIRATORY DISORDER
     Route: 055
  2. PREDNISOLONE. [Suspect]
     Active Substance: PREDNISOLONE
     Indication: PRODUCT USED FOR UNKNOWN INDICATION
     Route: 065
  3. SPIRIVA [Suspect]
     Active Substance: TIOTROPIUM BROMIDE MONOHYDRATE
     Indication: RESPIRATORY DISORDER
     Dosage: 1 CAPSULE, QD, 18 MG
     Route: 065
  4. RELVAR ELLIPTA [Suspect]
     Active Substance: FLUTICASONE FUROATE\VILANTEROL TRIFENATATE
     Indication: RESPIRATORY DISORDER
     Dosage: 1 PUFF(S)
     Route: 055
  5. AVAMYS [Suspect]
     Active Substance: FLUTICASONE FUROATE
     Indication: RESPIRATORY DISORDER
     Dosage: 2 PUFF(S)
     Route: 055
  6. NUCALA [Suspect]
     Active Substance: MEPOLIZUMAB
     Indication: ASTHMA
  7. NUCALA [Suspect]
     Active Substance: MEPOLIZUMAB
     Indication: PROPHYLAXIS
     Dosage: 100 MG, MONTHLY
     Route: 042
     Dates: start: 20180703
  8. LEVETIRACETAM. [Suspect]
     Active Substance: LEVETIRACETAM
     Indication: PRODUCT USED FOR UNKNOWN INDICATION
     Dosage: 2 TABLET, BID, 500 MG
     Route: 065
     Dates: start: 20190211

REACTIONS (2)
  - Epilepsy [Unknown]
  - Glioblastoma [Recovered/Resolved]

NARRATIVE: CASE EVENT DATE: 201902
